FAERS Safety Report 7478353-X (Version None)
Quarter: 2011Q2

REPORT INFORMATION
  Report Type: 
  Country: None (occurrence: None)
  Receive Date: 20110513
  Receipt Date: 20101229
  Transmission Date: 20111010
  Serious: Yes (Death)
  Sender: FDA-Public Use
  Company Number: US-BAYER-201017829NA

PATIENT
  Age: 56 Year
  Sex: Female
  Weight: 61.364 kg

DRUGS (38)
  1. OMNISCAN [Suspect]
     Indication: IMAGING PROCEDURE
  2. CARDIZEM [Concomitant]
  3. MIDODRINE HYDROCHLORIDE [Concomitant]
  4. PROHANCE [Suspect]
     Indication: IMAGING PROCEDURE
  5. GADOLITE [Suspect]
     Dosage: UNK
     Dates: start: 20060401
  6. GADOLITE [Suspect]
     Dosage: UNK
     Dates: start: 20061012
  7. SILDENAFIL [Concomitant]
  8. DIATX [Concomitant]
  9. EPOGEN [Concomitant]
  10. PHOSLO [Concomitant]
  11. ZEMPLAR [Concomitant]
  12. OPTIMARK [Suspect]
     Indication: IMAGING PROCEDURE
  13. EPOGEN [Concomitant]
  14. GADOLITE [Suspect]
     Dosage: UNK
     Dates: start: 19970416
  15. GADOLITE [Suspect]
     Dosage: UNK
     Dates: start: 20061009
  16. COUMADIN [Concomitant]
  17. FOSRENOL [Concomitant]
  18. SENSIPAR [Concomitant]
  19. MAGNEVIST [Suspect]
     Dates: start: 20060629, end: 20060629
  20. MAGNEVIST [Suspect]
     Dates: start: 20061002, end: 20061002
  21. MULTIHANCE [Suspect]
     Indication: IMAGING PROCEDURE
  22. GADOLITE [Suspect]
     Dosage: UNK
     Dates: start: 20020802
  23. GADOLITE [Suspect]
     Dosage: UNK
     Dates: start: 20061018
  24. LABETALOL [Concomitant]
  25. TOPROL-XL [Concomitant]
  26. QUININE SULFATE [Concomitant]
  27. ACTIVASE [Concomitant]
  28. GADOLITE [Suspect]
     Dosage: UNK
     Dates: start: 20061030
  29. AGGRENOX [Concomitant]
  30. MAGNEVIST [Suspect]
     Indication: NUCLEAR MAGNETIC RESONANCE IMAGING BRAIN
     Dates: start: 20060121, end: 20060121
  31. GADOLITE [Suspect]
     Dosage: UNK
     Dates: start: 20050610
  32. GADOLITE [Suspect]
     Dosage: UNK
     Dates: start: 20061106
  33. LANTHANUM CARBONATE [Concomitant]
  34. DIGOXIN [Concomitant]
  35. PARICALCITOL [Concomitant]
  36. MAGNEVIST [Suspect]
     Indication: CATHETER PLACEMENT
     Dates: start: 20010417, end: 20010417
  37. PREDNISONE [Concomitant]
  38. QUINIDINE [Concomitant]

REACTIONS (20)
  - NEPHROGENIC SYSTEMIC FIBROSIS [None]
  - SKIN TIGHTNESS [None]
  - ARTHRALGIA [None]
  - SKIN FIBROSIS [None]
  - SKIN EXFOLIATION [None]
  - PEAU D'ORANGE [None]
  - JOINT CONTRACTURE [None]
  - PRURITUS GENERALISED [None]
  - OEDEMA PERIPHERAL [None]
  - JOINT RANGE OF MOTION DECREASED [None]
  - DEFORMITY [None]
  - SKIN DISCOLOURATION [None]
  - EXTREMITY CONTRACTURE [None]
  - SKIN HYPERPIGMENTATION [None]
  - ABASIA [None]
  - SKIN BURNING SENSATION [None]
  - SKIN PLAQUE [None]
  - SKIN HYPERTROPHY [None]
  - PAIN [None]
  - GENERAL PHYSICAL HEALTH DETERIORATION [None]
